FAERS Safety Report 25773080 (Version 1)
Quarter: 2025Q3

REPORT INFORMATION
  Report Type: Spontaneous
  Country: US (occurrence: None)
  Receive Date: 20250906
  Receipt Date: 20250906
  Transmission Date: 20251021
  Serious: No
  Sender: FDA-CTU
  Company Number: None

PATIENT
  Age: 50 Year
  Sex: Male
  Weight: 77.4 kg

DRUGS (4)
  1. EQUATE HEMORRHODIAL SUPPOSITORIES [Suspect]
     Active Substance: COCOA BUTTER\PHENYLEPHRINE HYDROCHLORIDE
     Indication: Haemorrhoids
     Dosage: FREQUENCY : TWICE A DAY;?
     Route: 054
     Dates: start: 20250903, end: 20250905
  2. VITAMINS [Concomitant]
     Active Substance: VITAMINS
  3. PROSTATE SUPPLEMENT [Concomitant]
  4. DIETARY SUPPLEMENT [Concomitant]
     Active Substance: DIETARY SUPPLEMENT

REACTIONS (2)
  - Diarrhoea [None]
  - Flatulence [None]

NARRATIVE: CASE EVENT DATE: 20250904
